FAERS Safety Report 18293002 (Version 1)
Quarter: 2020Q3

REPORT INFORMATION
  Report Type: Spontaneous
  Country: US (occurrence: US)
  Receive Date: 20200922
  Receipt Date: 20200922
  Transmission Date: 20201103
  Serious: No
  Sender: FDA-Public Use
  Company Number: US-ALVOGEN-2020-ALVOGEN-113225

PATIENT
  Age: 63 Year
  Sex: Female

DRUGS (2)
  1. GRALISE [Suspect]
     Active Substance: GABAPENTIN
     Indication: NEURALGIA
     Dosage: 1?2 TABLETS DAILY FOR 1 WEEK AND THEN INCREASE TO 2 TABLETS DAILY WITH EVENING MEAL
     Route: 048
  2. GRALISE [Suspect]
     Active Substance: GABAPENTIN
     Indication: NEURITIS

REACTIONS (5)
  - Anxiety [Recovered/Resolved]
  - Drug titration error [Unknown]
  - Dyspnoea [Recovered/Resolved]
  - Product use in unapproved indication [Unknown]
  - Insomnia [Recovered/Resolved]

NARRATIVE: CASE EVENT DATE: 20190805
